FAERS Safety Report 16818629 (Version 2)
Quarter: 2019Q3

REPORT INFORMATION
  Report Type: Spontaneous
  Country: US (occurrence: US)
  Receive Date: 20190917
  Receipt Date: 20190927
  Transmission Date: 20191005
  Serious: Yes (Hospitalization)
  Sender: FDA-Public Use
  Company Number: US-TEVA-2019-US-1108803

PATIENT
  Age: 49 Year
  Sex: Female

DRUGS (4)
  1. ASPIRIN. [Concomitant]
     Active Substance: ASPIRIN
     Route: 065
  2. SEVELAMER [Concomitant]
     Active Substance: SEVELAMER
     Route: 065
  3. SIMVASTATIN. [Concomitant]
     Active Substance: SIMVASTATIN
     Route: 065
  4. WARFARIN [Suspect]
     Active Substance: WARFARIN
     Route: 065

REACTIONS (2)
  - Skin necrosis [Recovering/Resolving]
  - Calciphylaxis [Recovering/Resolving]
